FAERS Safety Report 6647747-4 (Version None)
Quarter: 2010Q1

REPORT INFORMATION
  Report Type: 
  Country: None (occurrence: None)
  Receive Date: 20100317
  Receipt Date: 20100304
  Transmission Date: 20100710
  Serious: Yes (Other)
  Sender: FDA-Public Use
  Company Number: 2010AP000441

PATIENT
  Age: 53 Year
  Sex: Female

DRUGS (5)
  1. CARBAMAZEPINE [Suspect]
     Indication: BIPOLAR I DISORDER
     Dosage: 200 MG;TAB;PO;BID
     Route: 048
     Dates: start: 19870101
  2. VALPROATE SODIUM [Concomitant]
  3. AMITRIPTYLINE HYDROCHLORIDE [Concomitant]
  4. ALENDRONIC ACID (ALENDRONIC ACID) [Concomitant]
  5. PERPHENAZINE [Concomitant]

REACTIONS (1)
  - OSTEOPOROSIS [None]
